APPROVED DRUG PRODUCT: DORZOLAMIDE HYDROCHLORIDE AND TIMOLOL MALEATE
Active Ingredient: DORZOLAMIDE HYDROCHLORIDE; TIMOLOL MALEATE
Strength: EQ 2% BASE;EQ 0.5% BASE
Dosage Form/Route: SOLUTION/DROPS;OPHTHALMIC
Application: A203058 | Product #001 | TE Code: AT1
Applicant: EPIC PHARMA LLC
Approved: Sep 22, 2014 | RLD: No | RS: No | Type: RX